FAERS Safety Report 7648218-9 (Version None)
Quarter: 2011Q3

REPORT INFORMATION
  Report Type: 
  Country: None (occurrence: None)
  Receive Date: 20110801
  Receipt Date: 20110726
  Transmission Date: 20111222
  Serious: Yes (Hospitalization, Disabling, Other)
  Sender: FDA-Public Use
  Company Number: US-PFIZER INC-2011170323

PATIENT
  Sex: Female
  Weight: 74.8 kg

DRUGS (2)
  1. GLUCOPHAGE [Concomitant]
     Indication: TYPE 2 DIABETES MELLITUS
     Dosage: 5 MG, UNKNOWN FREQUENCY
     Dates: start: 19951101
  2. PREMPRO [Suspect]
     Indication: HOT FLUSH
     Dosage: UNK
     Route: 048
     Dates: start: 20000901

REACTIONS (5)
  - WALKING DISABILITY [None]
  - MEMORY IMPAIRMENT [None]
  - CEREBROVASCULAR ACCIDENT [None]
  - PHYSICAL DISABILITY [None]
  - DIABETES MELLITUS [None]
